FAERS Safety Report 8014588-5 (Version None)
Quarter: 2011Q4

REPORT INFORMATION
  Report Type: 
  Country: None (occurrence: None)
  Receive Date: 20111223
  Receipt Date: 20111209
  Transmission Date: 20120403
  Serious: Yes (Other)
  Sender: FDA-Public Use
  Company Number: 2011AP003065

PATIENT
  Age: 89 Year
  Sex: Male

DRUGS (12)
  1. CLARITHROMYCIN [Suspect]
     Indication: PRODUCT USED FOR UNKNOWN INDICATION
     Dates: start: 20111122, end: 20111129
  2. ASPIRIN [Concomitant]
  3. VALSARTAN [Concomitant]
  4. FUROSEMIDE [Concomitant]
  5. MACROGOL (MACROGOL) [Concomitant]
  6. BISOPROLOL FUMARATE [Concomitant]
  7. BECONASE [Concomitant]
  8. DOUBLEBASE (HYDROMOL   /00906601/) [Concomitant]
  9. SIMVASTATIN [Concomitant]
  10. ALLOPURINOL [Concomitant]
  11. SPIRONOLACTONE [Concomitant]
  12. ACETAMINOPHEN W/ CODEINE [Concomitant]

REACTIONS (2)
  - HALLUCINATION, VISUAL [None]
  - URINARY INCONTINENCE [None]
